FAERS Safety Report 5458601-8 (Version None)
Quarter: 2007Q3

REPORT INFORMATION
  Report Type: 
  Country: None (occurrence: None)
  Receive Date: 20070919
  Receipt Date: 20070410
  Transmission Date: 20080115
  Serious: Yes (Other)
  Sender: FDA-Public Use
  Company Number: US-ASTRAZENECA-2007UW06987

PATIENT
  Age: 33 Year
  Sex: Male
  Weight: 90.7 kg

DRUGS (2)
  1. SEROQUEL [Suspect]
     Indication: BIPOLAR DISORDER
     Route: 048
     Dates: start: 20050101
  2. TOPAMAX [Concomitant]

REACTIONS (4)
  - APHASIA [None]
  - DIZZINESS [None]
  - ILL-DEFINED DISORDER [None]
  - SOMNOLENCE [None]
